FAERS Safety Report 6362124-1 (Version None)
Quarter: 2009Q3

REPORT INFORMATION
  Report Type: 
  Country: None (occurrence: None)
  Receive Date: 20090918
  Receipt Date: 20090911
  Transmission Date: 20100115
  Serious: Yes (Other)
  Sender: FDA-Public Use
  Company Number: US-JNJCH-2009024666

PATIENT
  Sex: Female
  Weight: 9.1 kg

DRUGS (1)
  1. BENADRYL CREAM EXTRA STRENGTH [Suspect]
     Indication: ACCIDENTAL EXPOSURE
     Dosage: TEXT:1/2 TUBE
     Route: 048
     Dates: start: 20090911, end: 20090911

REACTIONS (2)
  - ACCIDENTAL EXPOSURE [None]
  - LOSS OF CONSCIOUSNESS [None]
